FAERS Safety Report 12660533 (Version 3)
Quarter: 2017Q1

REPORT INFORMATION
  Report Type: Spontaneous
  Country: US (occurrence: US)
  Receive Date: 20160817
  Receipt Date: 20170216
  Transmission Date: 20170428
  Serious: No
  Sender: FDA-Public Use
  Company Number: US-RELYPSA-RLY2016000988

PATIENT
  Sex: Male

DRUGS (13)
  1. DEPAKOTE [Concomitant]
     Active Substance: DIVALPROEX SODIUM
  2. IVABRADINE [Concomitant]
     Active Substance: IVABRADINE
  3. PLAVIX [Concomitant]
     Active Substance: CLOPIDOGREL BISULFATE
  4. LAXATIVE [Concomitant]
     Active Substance: UNSPECIFIED INGREDIENT
  5. ASPIRIN 81 [Concomitant]
     Active Substance: ASPIRIN
  6. MAGNESIUM GLUCONATE [Concomitant]
     Active Substance: MAGNESIUM GLUCONATE
  7. DEMADEX [Concomitant]
     Active Substance: TORSEMIDE
  8. COREG CR [Concomitant]
     Active Substance: CARVEDILOL PHOSPHATE
  9. ALDACTONE [Concomitant]
     Active Substance: SPIRONOLACTONE
  10. NITRO-DUR [Concomitant]
     Active Substance: NITROGLYCERIN
  11. CRESTOR [Concomitant]
     Active Substance: ROSUVASTATIN CALCIUM
  12. STOOL SOFTENER [Concomitant]
  13. VELTASSA [Suspect]
     Active Substance: PATIROMER
     Indication: HYPERKALAEMIA
     Dosage: 8.4 G, QD
     Route: 048
     Dates: start: 20160526

REACTIONS (2)
  - Abdominal discomfort [Unknown]
  - Blood sodium decreased [Unknown]
